FAERS Safety Report 23393391 (Version 1)
Quarter: 2024Q1

REPORT INFORMATION
  Report Type: Spontaneous
  Country: US (occurrence: US)
  Receive Date: 20240111
  Receipt Date: 20240111
  Transmission Date: 20240410
  Serious: Yes (Other)
  Sender: FDA-Public Use
  Company Number: US-JNJFOC-20240108135

PATIENT

DRUGS (1)
  1. VISINE RED EYE TOTAL COMFORT MULTI-SYMPTOM [Suspect]
     Active Substance: POLYETHYLENE GLYCOL 400\TETRAHYDROZOLINE HYDROCHLORIDE\ZINC SULFATE
     Indication: Product used for unknown indication
     Dosage: USED 3 TIMES
     Route: 047

REACTIONS (2)
  - Blindness transient [Unknown]
  - Eye irritation [Unknown]

NARRATIVE: CASE EVENT DATE: 20231231
